FAERS Safety Report 6256449-8 (Version None)
Quarter: 2009Q2

REPORT INFORMATION
  Report Type: 
  Country: None (occurrence: None)
  Receive Date: 20090630
  Receipt Date: 20090630
  Transmission Date: 20091009
  Serious: Yes (Hospitalization, Other)
  Sender: FDA-Public Use
  Company Number: None

PATIENT
  Age: 44 Year
  Sex: Female
  Weight: 76.6579 kg

DRUGS (3)
  1. CIPRO [Suspect]
     Indication: CHRONIC SINUSITIS
     Dosage: 1 3 X DAY PO
     Route: 048
     Dates: start: 20070315, end: 20070504
  2. LEVAQUIN [Suspect]
     Indication: ACUTE SINUSITIS
     Dosage: 1 3X DAY PO
     Route: 048
  3. LEVAQUIN [Suspect]
     Indication: CHRONIC SINUSITIS
     Dosage: 1 3X DAY PO
     Route: 048

REACTIONS (13)
  - ARTHRALGIA [None]
  - CANDIDIASIS [None]
  - CARPAL TUNNEL SYNDROME [None]
  - FIBROMYALGIA [None]
  - FUNGAL INFECTION [None]
  - HAND FRACTURE [None]
  - MUSCLE ATROPHY [None]
  - MUSCLE SPASMS [None]
  - PAIN [None]
  - TENDON INJURY [None]
  - TENDON PAIN [None]
  - VAGINAL INFECTION [None]
  - WEIGHT INCREASED [None]
